FAERS Safety Report 4371125-4 (Version None)
Quarter: 2004Q2

REPORT INFORMATION
  Report Type: 
  Country: None (occurrence: None)
  Receive Date: 20040601
  Receipt Date: 20040525
  Transmission Date: 20050107
  Serious: Yes (Hospitalization, Other)
  Sender: FDA-Public Use
  Company Number: 2004-05-1808

PATIENT
  Sex: Female

DRUGS (2)
  1. INTRON A [Suspect]
     Dosage: 1.6MU TIW SUBCUTANEO
     Route: 058
  2. COTRIM FORTE (TRIMETHOPRIM) [Suspect]
     Indication: CYSTITIS
     Dosage: 960 MG BID ORAL
     Route: 048
     Dates: start: 20040419

REACTIONS (3)
  - BLADDER DISORDER [None]
  - HAEMORRHAGE [None]
  - SUBDURAL HAEMATOMA [None]
